FAERS Safety Report 25917416 (Version 2)
Quarter: 2025Q4

REPORT INFORMATION
  Report Type: Spontaneous
  Country: AR (occurrence: AR)
  Receive Date: 20251014
  Receipt Date: 20251113
  Transmission Date: 20260119
  Serious: Yes (Other)
  Sender: AMGEN
  Company Number: AR-AMGEN-ARGSP2025200192

PATIENT
  Age: 18 Year
  Sex: Female

DRUGS (2)
  1. BLINCYTO [Suspect]
     Active Substance: BLINATUMOMAB
     Indication: B precursor type acute leukaemia
     Dosage: 19 VIALS
     Route: 065
     Dates: start: 20250914, end: 20251005
  2. BLINCYTO [Suspect]
     Active Substance: BLINATUMOMAB
     Indication: CD19 antigen

REACTIONS (2)
  - B-cell type acute leukaemia [Unknown]
  - Therapy non-responder [Unknown]
